FAERS Safety Report 9650438 (Version 3)
Quarter: 2013Q4

REPORT INFORMATION
  Report Type: Report from Study
  Country: JP (occurrence: JP)
  Receive Date: 20131028
  Receipt Date: 20131114
  Transmission Date: 20140711
  Serious: Yes (Other)
  Sender: FDA-Public Use
  Company Number: JP-ABBVIE-10P-087-0685049-00

PATIENT
  Age: 66 Year
  Sex: Male
  Weight: 48.9 kg

DRUGS (11)
  1. HUMIRA [Suspect]
     Route: 058
     Dates: start: 20090501, end: 20100716
  2. METHOTREXATE [Concomitant]
     Indication: RHEUMATOID ARTHRITIS
     Route: 048
     Dates: start: 20081015, end: 20081030
  3. METHOTREXATE [Concomitant]
     Route: 048
     Dates: start: 20081031, end: 20100729
  4. FOLIC ACID [Concomitant]
     Indication: PROPHYLAXIS
     Route: 048
     Dates: start: 20090227, end: 20090528
  5. FOLIC ACID [Concomitant]
     Indication: ADVERSE REACTION
     Route: 048
     Dates: start: 20090529, end: 20100805
  6. FOLIC ACID [Concomitant]
     Route: 048
     Dates: start: 20100806, end: 20100813
  7. LOXOPROFEN SODIUM [Concomitant]
     Indication: RHEUMATOID ARTHRITIS
     Dates: start: 20081001, end: 20090625
  8. LOXOPROFEN SODIUM [Concomitant]
     Dates: start: 20090626, end: 20100812
  9. TEPRENONE [Concomitant]
     Indication: PROPHYLAXIS AGAINST GASTROINTESTINAL ULCER
     Route: 048
     Dates: start: 20081015, end: 20090625
  10. TEPRENONE [Concomitant]
     Dates: start: 20090626, end: 20100812
  11. LANSOPRAZOLE [Concomitant]
     Indication: PROPHYLAXIS AGAINST GASTROINTESTINAL ULCER
     Dosage: 15 MG
     Dates: start: 20100827

REACTIONS (5)
  - Hepatic function abnormal [Recovered/Resolved]
  - Bone tuberculosis [Recovered/Resolved]
  - Lymphadenopathy [Recovered/Resolved]
  - Computerised tomogram thorax abnormal [Recovered/Resolved]
  - Splenic lesion [Not Recovered/Not Resolved]
